FAERS Safety Report 11121512 (Version 1)
Quarter: 2015Q2

REPORT INFORMATION
  Report Type: Spontaneous
  Country: JP (occurrence: None)
  Receive Date: 20150515
  Receipt Date: 20150515
  Transmission Date: 20150821
  Serious: Yes (Hospitalization)
  Sender: FDA-Public Use
  Company Number: FK201502233

PATIENT
  Age: 39 Year
  Sex: Male

DRUGS (4)
  1. MITOMYCIN-C (MITOMYCIN) (MITOMYCIN) [Suspect]
     Active Substance: MITOMYCIN
     Indication: ADENOCARCINOMA OF COLON
  2. CAPECITABINE (CAPECITABINE) (CAPECITABINE) [Concomitant]
     Active Substance: CAPECITABINE
  3. FLUOROURACIL (MANUFACTURER UNKNOWN) (FLUOROURACIL) (FLUOROURACIL) [Suspect]
     Active Substance: FLUOROURACIL
     Indication: ADENOCARCINOMA OF COLON
  4. OXALIPLATIN (MANUFACTURER UNKNOWN) (OXALIPLATIN) (OXALIPLATIN) [Suspect]
     Active Substance: OXALIPLATIN
     Indication: ADENOCARCINOMA OF COLON

REACTIONS (1)
  - Sclerosing encapsulating peritonitis [None]
